FAERS Safety Report 5142050-6 (Version None)
Quarter: 2006Q4

REPORT INFORMATION
  Report Type: 
  Country: None (occurrence: None)
  Receive Date: 20061102
  Receipt Date: 20061025
  Transmission Date: 20070319
  Serious: Yes (Hospitalization)
  Sender: FDA-Public Use
  Company Number: US-KINGPHARMUSA00001-K200601339

PATIENT
  Sex: Male

DRUGS (1)
  1. SONATA [Suspect]
     Indication: SLEEP DISORDER
     Dosage: 10 MG, UNK
     Route: 048
     Dates: start: 20061002

REACTIONS (1)
  - BLOOD CREATINE PHOSPHOKINASE INCREASED [None]
